FAERS Safety Report 9503487 (Version 1)
Quarter: 2013Q1

REPORT INFORMATION
  Report Type: Spontaneous
  Country: US (occurrence: None)
  Receive Date: 20130130
  Receipt Date: 20130130
  Transmission Date: 20140127
  Serious: Yes (Other)
  Sender: FDA-Public Use
  Company Number: US2012100003109

PATIENT
  Age: 41 Year
  Sex: Female
  Weight: 111.1 kg

DRUGS (11)
  1. BYETTA [Suspect]
     Indication: TYPE 2 DIABETES MELLITUS
     Route: 058
     Dates: start: 20091007, end: 20120501
  2. METFORMIN [Concomitant]
  3. LORATADINE [Concomitant]
  4. INDERAL [Concomitant]
  5. XANAX [Concomitant]
  6. BENICAR [Concomitant]
  7. CITALOPRAM [Concomitant]
  8. TRAZODONE [Concomitant]
  9. ZETIA [Concomitant]
  10. CRESTOR [Concomitant]
  11. ARB [Concomitant]

REACTIONS (2)
  - Pancreatitis [None]
  - Weight decreased [None]
